FAERS Safety Report 6435444-X (Version None)
Quarter: 2009Q4

REPORT INFORMATION
  Report Type: 
  Country: None (occurrence: None)
  Receive Date: 20091106
  Receipt Date: 20091026
  Transmission Date: 20100525
  Serious: Yes (Other)
  Sender: FDA-Public Use
  Company Number: 230056J09DEU

PATIENT
  Age: 14 Year
  Sex: Female
  Weight: 64 kg

DRUGS (1)
  1. REBIF [Suspect]
     Indication: MULTIPLE SCLEROSIS
     Dosage: 22, 3 IN, SUBCUTANEOUS
     Route: 058
     Dates: start: 20090601, end: 20090922

REACTIONS (6)
  - ALANINE AMINOTRANSFERASE INCREASED [None]
  - ASPARTATE AMINOTRANSFERASE INCREASED [None]
  - BLOOD BILIRUBIN INCREASED [None]
  - DEPRESSION [None]
  - LIVER DISORDER [None]
  - PRURITUS [None]
